FAERS Safety Report 9937005 (Version 1)
Quarter: 2014Q1

REPORT INFORMATION
  Report Type: Spontaneous
  Country: US (occurrence: None)
  Receive Date: 20140116
  Receipt Date: 20140116
  Transmission Date: 20141002
  Serious: Yes (Other)
  Sender: FDA-Public Use
  Company Number: 2013AP010256

PATIENT
  Age: 50 Year
  Sex: Male

DRUGS (3)
  1. ZIPRASIDONE HYDROCHLORIDE [Suspect]
     Indication: BIPOLAR I DISORDER
     Route: 048
  2. DIVALPROEX SODIUM [Concomitant]
  3. SILDENAFIL [Concomitant]

REACTIONS (1)
  - Priapism [None]
